FAERS Safety Report 23197276 (Version 1)
Quarter: 2023Q4

REPORT INFORMATION
  Report Type: Spontaneous
  Country: US (occurrence: None)
  Receive Date: 20231117
  Receipt Date: 20231117
  Transmission Date: 20240110
  Serious: No
  Sender: FDA-Public Use
  Company Number: None

PATIENT
  Age: 66 Year
  Sex: Female

DRUGS (1)
  1. BOSENTAN [Suspect]
     Active Substance: BOSENTAN
     Indication: Pulmonary arterial hypertension
     Dosage: 62.5MG BID ORAL?
     Route: 048
     Dates: start: 20210427, end: 20231104

REACTIONS (2)
  - Liver function test increased [None]
  - Therapy interrupted [None]

NARRATIVE: CASE EVENT DATE: 20231104
